FAERS Safety Report 8221068-0 (Version None)
Quarter: 2012Q1

REPORT INFORMATION
  Report Type: 
  Country: None (occurrence: None)
  Receive Date: 20120320
  Receipt Date: 20120307
  Transmission Date: 20120608
  Serious: Yes (Hospitalization)
  Sender: FDA-Public Use
  Company Number: JP-ELI_LILLY_AND_COMPANY-JP201109001492

PATIENT
  Sex: Female

DRUGS (1)
  1. FORTEO [Suspect]
     Dosage: UNK
     Route: 058
     Dates: start: 20110701

REACTIONS (5)
  - INFLUENZA [None]
  - HEAD DISCOMFORT [None]
  - PARAESTHESIA [None]
  - HEADACHE [None]
  - PYREXIA [None]
